FAERS Safety Report 18328774 (Version 1)
Quarter: 2020Q3

REPORT INFORMATION
  Report Type: Spontaneous
  Country: DE (occurrence: DE)
  Receive Date: 20200930
  Receipt Date: 20200930
  Transmission Date: 20201103
  Serious: Yes (Hospitalization, Other)
  Sender: FDA-Public Use
  Company Number: DE-FERRINGPH-2020FE06526

PATIENT
  Age: 39 Year
  Sex: Female

DRUGS (3)
  1. PUREGON [FOLLITROPIN BETA] [Suspect]
     Active Substance: FOLLITROPIN
     Indication: ASSISTED REPRODUCTIVE TECHNOLOGY
     Dosage: 200/100 CHANGING }150?}125 IE, 1 PER DAY OVER 10 DAYS
     Route: 065
  2. BREVACTID [Suspect]
     Active Substance: GONADOTROPHIN, CHORIONIC
     Indication: PRODUCT USED FOR UNKNOWN INDICATION
     Route: 065
  3. ORGALUTRAN [Suspect]
     Active Substance: GANIRELIX ACETATE
     Indication: ASSISTED REPRODUCTIVE TECHNOLOGY
     Route: 065

REACTIONS (4)
  - Ovarian hyperstimulation syndrome [Recovered/Resolved]
  - Haemorrhagic ovarian cyst [Recovered/Resolved]
  - Adnexal torsion [Recovered/Resolved]
  - Ovarian cyst ruptured [Recovered/Resolved]

NARRATIVE: CASE EVENT DATE: 20200522
